FAERS Safety Report 15968532 (Version 1)
Quarter: 2019Q1

REPORT INFORMATION
  Report Type: Spontaneous
  Country: DE (occurrence: DE)
  Receive Date: 20190215
  Receipt Date: 20190215
  Transmission Date: 20190418
  Serious: Yes (Other)
  Sender: FDA-Public Use
  Company Number: DE-JNJFOC-20190209597

PATIENT
  Age: 7 Decade
  Sex: Female

DRUGS (4)
  1. ECURAL [Concomitant]
     Active Substance: MOMETASONE
     Indication: PRODUCT USED FOR UNKNOWN INDICATION
     Route: 065
  2. EUTHYROX [Concomitant]
     Active Substance: LEVOTHYROXINE SODIUM
     Indication: PRODUCT USED FOR UNKNOWN INDICATION
     Route: 065
  3. REGAINE FRAUEN SCHAUM 50MG/ML 2016 2X60ML PZN 11082202 [Suspect]
     Active Substance: MINOXIDIL
     Route: 061
  4. REGAINE FRAUEN SCHAUM 50MG/ML 2016 2X60ML PZN 11082202 [Suspect]
     Active Substance: MINOXIDIL
     Indication: ALOPECIA
     Dosage: MORE THAN HALF A CAP APPROXIMATELY THE SIZE OF 2 WALNUTS, LESS THAN A WHOLE CAP??DURATION: 1 YEAR
     Route: 061

REACTIONS (4)
  - Product use in unapproved indication [Unknown]
  - Off label use [Unknown]
  - Overdose [Unknown]
  - Haemorrhage subcutaneous [Recovered/Resolved]
